FAERS Safety Report 11764479 (Version 1)
Quarter: 2015Q4

REPORT INFORMATION
  Report Type: Spontaneous
  Country: US (occurrence: US)
  Receive Date: 20151120
  Receipt Date: 20151120
  Transmission Date: 20160304
  Serious: No
  Sender: FDA-Public Use
  Company Number: US-ELI_LILLY_AND_COMPANY-US201305009062

PATIENT
  Sex: Female

DRUGS (3)
  1. PREDNISONE. [Concomitant]
     Active Substance: PREDNISONE
     Dosage: UNK
     Dates: start: 201205, end: 20130514
  2. FORTEO [Suspect]
     Active Substance: TERIPARATIDE
     Indication: OSTEOPOROSIS
     Dosage: UNK UNK, QD
     Dates: start: 20130326
  3. FORTEO [Suspect]
     Active Substance: TERIPARATIDE
     Dosage: UNK UNK, QD

REACTIONS (3)
  - Head discomfort [Unknown]
  - Glossodynia [Unknown]
  - Oral discomfort [Unknown]

NARRATIVE: CASE EVENT DATE: 201305
